FAERS Safety Report 18478902 (Version 2)
Quarter: 2020Q4

REPORT INFORMATION
  Report Type: Report from Study
  Country: RO (occurrence: RO)
  Receive Date: 20201109
  Receipt Date: 20201222
  Transmission Date: 20210114
  Serious: Yes (Death, Hospitalization, Other)
  Sender: FDA-Public Use
  Company Number: RO-GILEAD-2020-0503110

PATIENT
  Age: 75 Year
  Sex: Female

DRUGS (1)
  1. LEDIPASVIR/SOFOSBUVIR [Suspect]
     Active Substance: LEDIPASVIR\SOFOSBUVIR
     Indication: CHRONIC HEPATITIS C
     Dosage: 1 DOSAGE FORM, QD
     Route: 048
     Dates: start: 20200908, end: 20201029

REACTIONS (7)
  - Seizure [Not Recovered/Not Resolved]
  - Coma [Not Recovered/Not Resolved]
  - COVID-19 pneumonia [Fatal]
  - Atrial fibrillation [Fatal]
  - Cardio-respiratory arrest [Fatal]
  - Cerebrovascular accident [Fatal]
  - Acute respiratory failure [Fatal]

NARRATIVE: CASE EVENT DATE: 20201029
